FAERS Safety Report 10780923 (Version 1)
Quarter: 2015Q1

REPORT INFORMATION
  Report Type: Spontaneous
  Country: US (occurrence: US)
  Receive Date: 20150210
  Receipt Date: 20150210
  Transmission Date: 20150721
  Serious: No
  Sender: FDA-Public Use
  Company Number: US-GLAXOSMITHKLINE-A1065585A

PATIENT

DRUGS (2)
  1. NICODERM CQ [Suspect]
     Active Substance: NICOTINE
     Indication: EX-TOBACCO USER
     Route: 062
  2. NICODERM CQ [Suspect]
     Active Substance: NICOTINE
     Indication: EX-TOBACCO USER
     Route: 062

REACTIONS (9)
  - Fatigue [Recovered/Resolved]
  - Nightmare [Recovered/Resolved]
  - Palpitations [Recovered/Resolved]
  - Feeling abnormal [Recovered/Resolved]
  - Application site pruritus [Recovered/Resolved]
  - Drug administration error [Unknown]
  - Blood pressure abnormal [Recovered/Resolved]
  - Erythema [Recovered/Resolved]
  - Feeling jittery [Recovered/Resolved]
